FAERS Safety Report 8984492 (Version 1)
Quarter: 2012Q4

REPORT INFORMATION
  Report Type: Spontaneous
  Country: GB (occurrence: None)
  Receive Date: 20121214
  Receipt Date: 20121214
  Transmission Date: 20130627
  Serious: Yes (Other)
  Sender: FDA-Public Use
  Company Number: GB-DEXPHARM-20121775

PATIENT
  Age: 29 Year
  Sex: Female

DRUGS (1)
  1. PREGABALIN [Suspect]
     Indication: PAIN
     Dates: start: 20080815

REACTIONS (7)
  - Forceps delivery [None]
  - Haemorrhage in pregnancy [None]
  - Pelvic pain [None]
  - Maternal exposure during pregnancy [None]
  - Pregnancy [None]
  - Induced labour [None]
  - Infection [None]
